FAERS Safety Report 18481294 (Version 4)
Quarter: 2021Q1

REPORT INFORMATION
  Report Type: Spontaneous
  Country: US (occurrence: US)
  Receive Date: 20201109
  Receipt Date: 20210104
  Transmission Date: 20210419
  Serious: Yes (Other)
  Sender: FDA-Public Use
  Company Number: US-PFIZER INC-2020429341

PATIENT
  Age: 68 Year
  Sex: Male
  Weight: 88 kg

DRUGS (1)
  1. XELJANZ [Suspect]
     Active Substance: TOFACITINIB CITRATE
     Indication: RHEUMATOID ARTHRITIS
     Dosage: 5 MG, 2X/DAY
     Route: 048

REACTIONS (8)
  - Movement disorder [Unknown]
  - Hypoaesthesia [Unknown]
  - Renal disorder [Unknown]
  - Ankle fracture [Unknown]
  - Balance disorder [Unknown]
  - Nerve compression [Unknown]
  - Grip strength decreased [Unknown]
  - Gait inability [Unknown]
